FAERS Safety Report 6533107-3 (Version None)
Quarter: 2010Q1

REPORT INFORMATION
  Report Type: 
  Country: None (occurrence: None)
  Receive Date: 20100111
  Receipt Date: 20100106
  Transmission Date: 20100710
  Serious: Yes (Other)
  Sender: FDA-Public Use
  Company Number: US-PFIZER INC-2008051129

PATIENT
  Sex: Female
  Weight: 68.027 kg

DRUGS (5)
  1. CHANTIX [Suspect]
     Indication: SMOKING CESSATION THERAPY
     Dates: start: 20080601
  2. LORAZEPAM [Concomitant]
     Indication: ANXIETY
  3. OXCARBAZEPINE [Concomitant]
     Indication: MOOD SWINGS
  4. ZOLPIDEM TARTRATE [Concomitant]
     Indication: INSOMNIA
  5. VERAPAMIL HCL [Concomitant]

REACTIONS (1)
  - DEPRESSION [None]
